FAERS Safety Report 21318524 (Version 1)
Quarter: 2022Q3

REPORT INFORMATION
  Report Type: Spontaneous
  Country: US (occurrence: US)
  Receive Date: 20220911
  Receipt Date: 20220911
  Transmission Date: 20221026
  Serious: No
  Sender: FDA-Public Use
  Company Number: US-SA-SAC20220830000401

PATIENT
  Sex: Female
  Weight: 88.435 kg

DRUGS (20)
  1. CERDELGA [Suspect]
     Active Substance: ELIGLUSTAT
     Indication: Gaucher^s disease
     Dosage: 84 MG, BID
     Route: 065
     Dates: start: 20220415
  2. GAS-X [Concomitant]
     Active Substance: DIMETHICONE
     Dosage: GAS X ULTRA STRENGTH
     Route: 065
  3. NITROFURANTOIN [Concomitant]
     Active Substance: NITROFURANTOIN
     Dosage: UNK
     Route: 065
  4. METOPROLOL SUCCINATE [Concomitant]
     Active Substance: METOPROLOL SUCCINATE
     Dosage: UNK
     Route: 065
  5. QUERCETIN DIHYDRATE [Concomitant]
     Active Substance: QUERCETIN DIHYDRATE
     Dosage: UNK
     Route: 065
  6. NEXIUM I.V. [Concomitant]
     Active Substance: ESOMEPRAZOLE SODIUM
     Dosage: UNK
     Route: 065
  7. DOXAZOSIN MESYLATE [Concomitant]
     Active Substance: DOXAZOSIN MESYLATE
     Dosage: UNK
     Route: 065
  8. DICYCLOMINE HYDROCHLORIDE [Concomitant]
     Active Substance: DICYCLOMINE HYDROCHLORIDE
     Dosage: UNK
     Route: 065
  9. VITAMINS [Concomitant]
     Active Substance: VITAMINS
     Dosage: UNK
     Route: 065
  10. BIOTIN [Concomitant]
     Active Substance: BIOTIN
     Dosage: UNK
     Route: 065
  11. CALCIUM\VITAMIN D [Concomitant]
     Active Substance: CALCIUM\VITAMIN D
     Dosage: CALCIUM + D CHEW
     Route: 065
  12. VITAMIN C [Concomitant]
     Active Substance: ASCORBIC ACID
     Dosage: VITAMIN C CHEW
     Route: 065
  13. OMEGA 3 FISH OIL [FISH OIL] [Concomitant]
     Dosage: OMEGA FISH OIL
     Route: 065
  14. GLUCOSAMINE [Concomitant]
     Active Substance: GLUCOSAMINE
     Dosage: UNK
     Route: 065
  15. MONTELUKAST SODIUM [Concomitant]
     Active Substance: MONTELUKAST SODIUM
     Dosage: UNK
     Route: 065
  16. ASPIRIN [Concomitant]
     Active Substance: ASPIRIN
     Dosage: ASPIRIN CHEW
     Route: 065
  17. ZINC [Concomitant]
     Active Substance: ZINC
     Dosage: UNK
     Route: 065
  18. BIFIDOBACTERIUM ANIMALIS LACTIS [Concomitant]
     Active Substance: BIFIDOBACTERIUM ANIMALIS LACTIS
     Dosage: PROBIOTIC B
     Route: 065
  19. MODERNA COVID-19 VACCINE [Concomitant]
     Active Substance: ELASOMERAN
     Indication: Immunisation
     Dosage: UNK
     Route: 065
  20. FIBER THERAPY [Concomitant]
     Active Substance: METHYLCELLULOSE (4000 MPA.S)
     Dosage: FIBER THERAPY G
     Route: 065

REACTIONS (1)
  - Tinea infection [Unknown]
